FAERS Safety Report 15459950 (Version 1)
Quarter: 2018Q4

REPORT INFORMATION
  Report Type: Report from Study
  Country: LT (occurrence: LT)
  Receive Date: 20181003
  Receipt Date: 20181003
  Transmission Date: 20190204
  Serious: Yes (Hospitalization)
  Sender: FDA-Public Use
  Company Number: LT-IPSEN BIOPHARMACEUTICALS, INC.-2018-14902

PATIENT
  Age: 39 Year
  Sex: Male
  Weight: 86 kg

DRUGS (2)
  1. DYSPORT [Suspect]
     Active Substance: ABOBOTULINUMTOXINA
     Indication: NEUROGENIC BLADDER
     Dosage: 600/800 UNITS
     Route: 030
     Dates: start: 20180912, end: 20180912
  2. TOLTERODINUM [Concomitant]
     Indication: NEUROGENIC BLADDER
     Dates: start: 20180315

REACTIONS (1)
  - Urinary bladder haemorrhage [Recovering/Resolving]

NARRATIVE: CASE EVENT DATE: 20180917
